FAERS Safety Report 9964017 (Version 2)
Quarter: 2014Q2

REPORT INFORMATION
  Report Type: Report from Study
  Country: JP (occurrence: JP)
  Receive Date: 20140305
  Receipt Date: 20140411
  Transmission Date: 20141212
  Serious: Yes (Death, Hospitalization)
  Sender: FDA-Public Use
  Company Number: JP-ACTELION-A-CH2014-95705

PATIENT
  Age: 65 Year
  Sex: Female
  Weight: 36.8 kg

DRUGS (20)
  1. MACITENTAN [Suspect]
     Indication: PULMONARY ARTERIAL HYPERTENSION
     Dosage: 10 MG, QD
     Route: 048
     Dates: start: 20130321, end: 20140222
  2. BERASUS [Concomitant]
     Dosage: 180 ?G, QD
     Route: 048
     Dates: start: 20080128
  3. REVATIO [Concomitant]
     Dosage: 20 MG, TID
     Dates: start: 20100531
  4. MEDROL [Concomitant]
     Dosage: UNK
     Dates: start: 20030116
  5. JUVELA N [Concomitant]
     Dosage: UNK
     Dates: start: 20030116
  6. ANPLAG [Concomitant]
     Dosage: 100 MG, TID
     Dates: start: 20060427
  7. LOCHOL [Concomitant]
     Dosage: UNK
     Dates: start: 20070419
  8. ALFAROL [Concomitant]
     Dosage: UNK
     Dates: start: 20030116
  9. ALDACTONE [Concomitant]
     Dosage: UNK
     Dates: start: 20100426
  10. LASIX [Concomitant]
     Dosage: UNK
     Dates: start: 20100319
  11. LUPRAC [Concomitant]
     Dosage: UNK
     Dates: start: 20100623
  12. ENTERONON-R [Concomitant]
     Dosage: UNK
     Dates: start: 20111105
  13. GASMOTIN [Concomitant]
     Dosage: 5 MG, TID
     Dates: start: 20050203
  14. PARIET [Concomitant]
     Dosage: UNK
     Dates: start: 20090309
  15. ERYTHROCIN [Concomitant]
     Dosage: 200 MG, Q4HRS
     Dates: start: 20100617
  16. PROSTANDIN [Concomitant]
     Dosage: UNK
     Dates: start: 20130317
  17. HYALEIN MINI [Concomitant]
     Dosage: UNK
     Route: 047
  18. MIYA BM [Concomitant]
     Dosage: UNK
     Route: 048
     Dates: start: 20130417
  19. FERROMIA [Concomitant]
     Dosage: UNK
     Route: 048
     Dates: start: 20131225
  20. ENSURE [Concomitant]
     Dosage: UNK
     Dates: start: 20131225

REACTIONS (5)
  - Pulmonary embolism [Fatal]
  - Femoral neck fracture [Not Recovered/Not Resolved]
  - Fall [Not Recovered/Not Resolved]
  - Nausea [Fatal]
  - Cardiac arrest [Fatal]
